FAERS Safety Report 9949314 (Version 2)
Quarter: 2014Q1

REPORT INFORMATION
  Report Type: Spontaneous
  Country: FR (occurrence: FR)
  Receive Date: 20140304
  Receipt Date: 20140317
  Transmission Date: 20141002
  Serious: Yes (Hospitalization)
  Sender: FDA-Public Use
  Company Number: FR-TEVA-465127ISR

PATIENT
  Age: 35 Year
  Sex: Female

DRUGS (2)
  1. COPAXONE [Suspect]
     Dates: start: 20130925
  2. LEVOTHYROX [Concomitant]
     Indication: THYROID NEOPLASM
     Dates: start: 2002

REACTIONS (6)
  - Multiple sclerosis relapse [Unknown]
  - Paraesthesia [Unknown]
  - Paraesthesia [Unknown]
  - Diplopia [Unknown]
  - Hyperacusis [Unknown]
  - Vertigo positional [Unknown]
